FAERS Safety Report 7474889-6 (Version None)
Quarter: 2011Q2

REPORT INFORMATION
  Report Type: 
  Country: None (occurrence: None)
  Receive Date: 20110512
  Receipt Date: 20110408
  Transmission Date: 20111010
  Serious: Yes (Hospitalization, Other)
  Sender: FDA-Public Use
  Company Number: US-BAYER-201011125NA

PATIENT
  Age: 33 Year
  Sex: Female
  Weight: 70.295 kg

DRUGS (11)
  1. MULTI-VITAMIN [Concomitant]
  2. ALLI [Concomitant]
  3. JOINT SUPPLEMENTS [Concomitant]
  4. VITAMIN E [Concomitant]
  5. YASMIN [Suspect]
     Indication: PRODUCT USED FOR UNKNOWN INDICATION
  6. AZITHROMYCIN [Concomitant]
     Dosage: UNK
     Dates: start: 20080725
  7. YAZ [Suspect]
     Indication: ACNE
  8. YAZ [Suspect]
     Indication: PREMENSTRUAL SYNDROME
  9. HAIR GROWTH SUPPLEMENT [Concomitant]
  10. ACETAMINOPHEN [Concomitant]
     Dosage: UNK UNK, PRN
  11. AMOXICILLIN [Concomitant]
     Dosage: UNK
     Dates: start: 20080729

REACTIONS (2)
  - PULMONARY EMBOLISM [None]
  - DEPRESSION [None]
